FAERS Safety Report 4487669-0 (Version None)
Quarter: 2004Q4

REPORT INFORMATION
  Report Type: 
  Country: None (occurrence: None)
  Receive Date: 20041027
  Receipt Date: 20041027
  Transmission Date: 20050328
  Serious: Yes (Life-Threatening, Hospitalization)
  Sender: FDA-Public Use
  Company Number: None

PATIENT
  Age: 71 Year
  Sex: Male
  Weight: 113.9 kg

DRUGS (6)
  1. VASOTEC [Suspect]
     Dosage: 10 MG BID ORAL
     Route: 048
  2. ZAROXOLYN [Concomitant]
  3. LASIX [Concomitant]
  4. PRAVACHOL [Concomitant]
  5. AMITRIPTYLINE HCL [Concomitant]
  6. PLAVIX [Concomitant]

REACTIONS (3)
  - BLOOD GLUCOSE DECREASED [None]
  - SWOLLEN TONGUE [None]
  - SYNCOPE [None]
